FAERS Safety Report 10749390 (Version 1)
Quarter: 2015Q1

REPORT INFORMATION
  Report Type: Spontaneous
  Country: US (occurrence: US)
  Receive Date: 20150129
  Receipt Date: 20150129
  Transmission Date: 20150721
  Serious: Yes (Other)
  Sender: FDA-Public Use
  Company Number: US-AMGEN-USASP2015007341

PATIENT
  Age: 76 Year
  Sex: Male

DRUGS (6)
  1. RITUXIMAB [Concomitant]
     Active Substance: RITUXIMAB
     Indication: LYMPHOMA
     Dosage: UNK
  2. NEULASTA [Suspect]
     Active Substance: PEGFILGRASTIM
     Indication: LYMPHOMA
     Dosage: 6 MG, UNK
     Route: 065
  3. PREDNISOLONE. [Concomitant]
     Active Substance: PREDNISOLONE
     Indication: LYMPHOMA
     Dosage: UNK
  4. CYCLOPHOSPHAMIDE. [Concomitant]
     Active Substance: CYCLOPHOSPHAMIDE
     Indication: LYMPHOMA
     Dosage: UNK
  5. ONCOVIN [Concomitant]
     Active Substance: VINCRISTINE SULFATE
     Indication: LYMPHOMA
     Dosage: UNK
  6. DOXORUBICIN [Concomitant]
     Active Substance: DOXORUBICIN
     Indication: LYMPHOMA
     Dosage: UNK

REACTIONS (2)
  - Neutrophil count abnormal [Unknown]
  - Nausea [Unknown]

NARRATIVE: CASE EVENT DATE: 20140126
